FAERS Safety Report 4642493-0 (Version None)
Quarter: 2005Q2

REPORT INFORMATION
  Report Type: 
  Country: None (occurrence: None)
  Receive Date: 20050420
  Receipt Date: 20050420
  Transmission Date: 20051028
  Serious: Yes (Hospitalization)
  Sender: FDA-Public Use
  Company Number: None

PATIENT
  Age: 79 Year
  Sex: Male
  Weight: 82.5547 kg

DRUGS (1)
  1. EPOETIN ALFA [Suspect]
     Indication: ANAEMIA
     Dosage: 40,000 UNITS   WEEKLY SUBCUTANEOUS
     Route: 058
     Dates: start: 20040903, end: 20050311

REACTIONS (1)
  - DEEP VEIN THROMBOSIS [None]
